FAERS Safety Report 24416619 (Version 3)
Quarter: 2024Q4

REPORT INFORMATION
  Report Type: Spontaneous
  Country: US (occurrence: US)
  Receive Date: 20241009
  Receipt Date: 20241219
  Transmission Date: 20250115
  Serious: Yes (Hospitalization, Other)
  Sender: SANOFI AVENTIS
  Company Number: US-SANOFI-02239747

PATIENT
  Age: 77 Year
  Sex: Male

DRUGS (7)
  1. SARCLISA [Suspect]
     Active Substance: ISATUXIMAB-IRFC
     Indication: Plasma cell myeloma
     Dosage: UNK
     Dates: start: 20240919
  2. VELCADE [Concomitant]
     Active Substance: BORTEZOMIB
  3. PEPCID [Concomitant]
     Active Substance: FAMOTIDINE
  4. TYLENOL [Concomitant]
     Active Substance: ACETAMINOPHEN
  5. DECADRON [Concomitant]
     Active Substance: DEXAMETHASONE
  6. BENADRYL [Concomitant]
     Active Substance: DIPHENHYDRAMINE HYDROCHLORIDE
  7. SINGULAIR [Concomitant]
     Active Substance: MONTELUKAST SODIUM

REACTIONS (4)
  - Rhabdomyolysis [Recovered/Resolved]
  - Arthralgia [Recovered/Resolved]
  - Fatigue [Recovered/Resolved]
  - Asthenia [Recovered/Resolved]

NARRATIVE: CASE EVENT DATE: 20240920
